FAERS Safety Report 7899854-6 (Version None)
Quarter: 2011Q4

REPORT INFORMATION
  Report Type: 
  Country: None (occurrence: None)
  Receive Date: 20111107
  Receipt Date: 20110926
  Transmission Date: 20120403
  Serious: No
  Sender: FDA-Public Use
  Company Number: US-AMGEN-USASP2011035380

PATIENT
  Age: 31 Year
  Sex: Female
  Weight: 54.422 kg

DRUGS (2)
  1. ENBREL [Suspect]
     Indication: RHEUMATOID ARTHRITIS
     Dosage: 50 MG, QWK
     Route: 058
     Dates: start: 20100601
  2. METHOTREXATE [Concomitant]
     Dosage: UNK
     Dates: start: 20100801

REACTIONS (3)
  - RASH [None]
  - MUSCLE MASS [None]
  - ERYTHEMA [None]
